FAERS Safety Report 15213024 (Version 5)
Quarter: 2020Q3

REPORT INFORMATION
  Report Type: Other
  Country: NL (occurrence: NL)
  Receive Date: 20180730
  Receipt Date: 20200722
  Transmission Date: 20201102
  Serious: Yes (Death, Life-Threatening, Hospitalization)
  Sender: FDA-Public Use
  Company Number: NL-ROCHE-2159397

PATIENT
  Age: 69 Year
  Sex: Male

DRUGS (10)
  1. ALENDRONINEZUUR [Concomitant]
     Active Substance: ALENDRONIC ACID
  2. OMEPRAZOL [Concomitant]
     Active Substance: OMEPRAZOLE
  3. FOLIUMZUUR [Concomitant]
     Active Substance: FOLIC ACID
  4. LEFLUNOMIDE. [Concomitant]
     Active Substance: LEFLUNOMIDE
  5. TOCILIZUMAB. [Suspect]
     Active Substance: TOCILIZUMAB
     Indication: RHEUMATOID ARTHRITIS
     Dosage: LAST DOSE: 11/JUN/2018
     Route: 058
     Dates: start: 20160914, end: 20180612
  6. PREDNISOLON [Suspect]
     Active Substance: PREDNISOLONE
     Indication: RHEUMATOID ARTHRITIS
     Route: 050
     Dates: start: 20180116, end: 20180831
  7. FENPROCOUMON [Concomitant]
     Active Substance: PHENPROCOUMON
  8. METHOTREXATE (METHOTREXATE SODIUM) [Suspect]
     Active Substance: METHOTREXATE SODIUM
     Indication: RHEUMATOID ARTHRITIS
     Dosage: LAST DOSE: 06/JUN/2018
     Route: 050
     Dates: start: 20180116, end: 20180612
  9. CITALOPRAM [Concomitant]
     Active Substance: CITALOPRAM HYDROBROMIDE
  10. DICLOFENAC AL RETARD [Concomitant]

REACTIONS (2)
  - JC virus CSF test positive [Unknown]
  - Progressive multifocal leukoencephalopathy [Recovered/Resolved]

NARRATIVE: CASE EVENT DATE: 20180612
